FAERS Safety Report 6261937-4 (Version None)
Quarter: 2009Q3

REPORT INFORMATION
  Report Type: 
  Country: None (occurrence: None)
  Receive Date: 20090709
  Receipt Date: 20090304
  Transmission Date: 20100115
  Serious: Yes (Death, Life-Threatening)
  Sender: FDA-Public Use
  Company Number: B0582798A

PATIENT
  Age: 67 Year
  Sex: Male
  Weight: 90 kg

DRUGS (7)
  1. OMACOR [Suspect]
     Dosage: 1000MG PER DAY
     Route: 048
     Dates: start: 20040912, end: 20040925
  2. BETA BLOCKERS [Concomitant]
     Dates: end: 20040925
  3. ASPIRIN [Concomitant]
     Dates: end: 20040925
  4. CLOPIDOGREL [Concomitant]
     Dates: end: 20040925
  5. MARCUMAR [Concomitant]
     Dates: end: 20040925
  6. ACE INHIBITORS [Concomitant]
     Dates: end: 20040925
  7. DIURETICS [Concomitant]
     Dates: end: 20040925

REACTIONS (2)
  - LEFT VENTRICULAR DYSFUNCTION [None]
  - SUDDEN CARDIAC DEATH [None]
